FAERS Safety Report 8914263 (Version 1)
Quarter: 2012Q4

REPORT INFORMATION
  Report Type: 
  Country: DE (occurrence: DE)
  Receive Date: 20121118
  Receipt Date: 20121118
  Transmission Date: 20130627
  Serious: Yes (Hospitalization)
  Sender: FDA-Public Use
  Company Number: DE-AMGEN-DEUCT2012073480

PATIENT
  Age: 6 Year
  Sex: Female
  Weight: 19.5 kg

DRUGS (4)
  1. ETANERCEPT [Suspect]
     Indication: PRODUCT USED FOR UNKNOWN INDICATION
     Dosage: 15 mg, qwk
     Dates: start: 201207
  2. METHOTREXATE SODIUM [Concomitant]
     Indication: PRODUCT USED FOR UNKNOWN INDICATION
     Dosage: 10 mg, weekly
     Dates: start: 20100723
  3. IBUPROFEN [Concomitant]
     Dosage: 400 mg/day
     Route: 048
     Dates: start: 201007
  4. FOLIC ACID [Concomitant]
     Dosage: 5 mg, weekly
     Route: 048
     Dates: start: 201007

REACTIONS (1)
  - Pyrexia [Recovered/Resolved]
